FAERS Safety Report 4841851-9 (Version None)
Quarter: 2005Q4

REPORT INFORMATION
  Report Type: 
  Country: None (occurrence: None)
  Receive Date: 20051125
  Receipt Date: 20051107
  Transmission Date: 20060501
  Serious: Yes (Death)
  Sender: FDA-Public Use
  Company Number: 2005-BP-19722RO

PATIENT
  Age: 31 Year
  Sex: 0

DRUGS (3)
  1. PROPRANOLOL [Suspect]
     Dosage: NR
  2. NORTRIPTYLINE HCL [Suspect]
     Dosage: NR
  3. OXCARBAZEPINE [Suspect]
     Dosage: NR

REACTIONS (2)
  - MULTIPLE DRUG OVERDOSE [None]
  - SUICIDE ATTEMPT [None]
